FAERS Safety Report 24120887 (Version 1)
Quarter: 2024Q3

REPORT INFORMATION
  Report Type: Report from Study
  Country: JP (occurrence: JP)
  Receive Date: 20240722
  Receipt Date: 20240722
  Transmission Date: 20241017
  Serious: Yes (Death, Hospitalization)
  Sender: IPSEN
  Company Number: JP-IPSEN Group, Research and Development-2024-14431

PATIENT
  Age: 82 Year
  Sex: Male

DRUGS (1)
  1. TAZVERIK [Suspect]
     Active Substance: TAZEMETOSTAT HYDROBROMIDE
     Indication: Follicular lymphoma
     Route: 048
     Dates: start: 202405

REACTIONS (2)
  - Malignant neoplasm progression [Fatal]
  - Muscular weakness [Unknown]

NARRATIVE: CASE EVENT DATE: 20240601
